FAERS Safety Report 8630006 (Version 2)
Quarter: 2012Q4

REPORT INFORMATION
  Report Type: 
  Country: BR (occurrence: BR)
  Receive Date: 20120622
  Receipt Date: 20121101
  Transmission Date: 20130627
  Serious: Yes (Other)
  Sender: FDA-Public Use
  Company Number: BR-PFIZER INC-2012148405

PATIENT
  Age: 57 Year
  Sex: Female

DRUGS (10)
  1. GENOTROPIN [Suspect]
     Indication: OFF LABEL USE
     Dosage: 0.8 mg, 6x/week
     Route: 058
     Dates: start: 20030701
  2. ALENDRONATE SODIUM [Concomitant]
     Dosage: UNK
  3. BENICAR [Concomitant]
     Indication: BLOOD PRESSURE INCREASED
     Dosage: UNK
  4. SELENIUM [Concomitant]
     Dosage: UNK
  5. CENTRUM [Concomitant]
     Indication: SURGERY
     Dosage: UNK
  6. SYNTHROID [Concomitant]
     Indication: THYROID DISORDER
     Dosage: UNK
  7. MAGNESIUM CHLORIDE ANHYDROUS [Concomitant]
     Indication: ARTHROSIS
     Dosage: UNK
  8. MAGNESIUM CHLORIDE ANHYDROUS [Concomitant]
     Indication: BACK PAIN
  9. DEOCIL [Concomitant]
     Dosage: UNK
  10. FRONTAL [Concomitant]
     Dosage: UNK
     Dates: end: 20070805

REACTIONS (8)
  - Breast cancer [Unknown]
  - Gastric disorder [Unknown]
  - Weight decreased [Unknown]
  - Decreased immune responsiveness [Unknown]
  - Hypotension [Unknown]
  - Plastic surgery [Unknown]
  - Arthralgia [Unknown]
  - Vitamin C decreased [Unknown]
